FAERS Safety Report 18511912 (Version 1)
Quarter: 2020Q4

REPORT INFORMATION
  Report Type: Spontaneous
  Country: US (occurrence: US)
  Receive Date: 20201117
  Receipt Date: 20201117
  Transmission Date: 20210114
  Serious: Yes (Other)
  Sender: FDA-Public Use
  Company Number: None

PATIENT
  Age: 59 Year
  Sex: Male
  Weight: 81 kg

DRUGS (3)
  1. LOPID [Concomitant]
     Active Substance: GEMFIBROZIL
  2. CLINDAMYCIN HCL 150MG [Suspect]
     Active Substance: CLINDAMYCIN HYDROCHLORIDE
     Indication: TOOTH INFECTION
     Route: 061
     Dates: start: 20201109, end: 20201113
  3. METROPORLOL [Concomitant]

REACTIONS (3)
  - Hypersensitivity [None]
  - Skin exfoliation [None]
  - Dry skin [None]

NARRATIVE: CASE EVENT DATE: 20201109
